FAERS Safety Report 6113164-9 (Version None)
Quarter: 2009Q1

REPORT INFORMATION
  Report Type: 
  Country: None (occurrence: None)
  Receive Date: 20090312
  Receipt Date: 20090302
  Transmission Date: 20090719
  Serious: Yes (Other)
  Sender: FDA-Public Use
  Company Number: ZA-PFIZER INC-2009177894

PATIENT

DRUGS (4)
  1. ASPAVOR [Suspect]
     Dosage: FREQUENCY: DAILY;
     Route: 048
     Dates: start: 20090201
  2. ATERAX [Concomitant]
  3. ELTROXIN [Concomitant]
  4. DISPRIN [Concomitant]

REACTIONS (3)
  - ARTERIAL OCCLUSIVE DISEASE [None]
  - MUSCULAR WEAKNESS [None]
  - PAIN [None]
